FAERS Safety Report 16949932 (Version 3)
Quarter: 2020Q1

REPORT INFORMATION
  Report Type: Report from Study
  Country: FR (occurrence: FR)
  Receive Date: 20191023
  Receipt Date: 20200311
  Transmission Date: 20200409
  Serious: Yes (Other)
  Sender: FDA-Public Use
  Company Number: NVSC2019FR003628

PATIENT
  Age: 40 Year
  Sex: Female
  Weight: 90 kg

DRUGS (14)
  1. NEBIVOLOL. [Concomitant]
     Active Substance: NEBIVOLOL
     Indication: PRODUCT USED FOR UNKNOWN INDICATION
     Dosage: 5 MG, QD
     Route: 065
  2. XGEVA [Concomitant]
     Active Substance: DENOSUMAB
     Indication: PRODUCT USED FOR UNKNOWN INDICATION
     Route: 065
  3. ACETAMINOPHEN. [Concomitant]
     Active Substance: ACETAMINOPHEN
     Indication: PRODUCT USED FOR UNKNOWN INDICATION
     Route: 065
  4. BYL719 [Suspect]
     Active Substance: ALPELISIB
     Dosage: 200 MG, QD
     Route: 065
  5. OROCAL [Concomitant]
     Indication: PRODUCT USED FOR UNKNOWN INDICATION
     Dosage: UNK, QD
     Route: 065
  6. BYL719 [Suspect]
     Active Substance: ALPELISIB
     Dosage: 250 MG
     Route: 048
     Dates: start: 20190912, end: 20190919
  7. LEVOTHYROX [Concomitant]
     Active Substance: LEVOTHYROXINE
     Indication: PRODUCT USED FOR UNKNOWN INDICATION
     Dosage: 87.5 MG
     Route: 065
  8. OMEPRAZOLE. [Concomitant]
     Active Substance: OMEPRAZOLE
     Indication: PRODUCT USED FOR UNKNOWN INDICATION
     Dosage: 20 MG, QD
     Route: 065
  9. METFORMINE [Concomitant]
     Active Substance: METFORMIN HYDROCHLORIDE
     Dosage: 1000 OT
     Route: 065
  10. BYL719 [Suspect]
     Active Substance: ALPELISIB
     Indication: BREAST CANCER METASTATIC
     Dosage: 300 MG
     Route: 048
     Dates: start: 20190819, end: 20190901
  11. METEOXANE [Concomitant]
     Active Substance: AMOBARBITAL\BELLADONNA LEAF\DIMETHICONE\ERGOTAMINE TARTRATE
     Indication: PRODUCT USED FOR UNKNOWN INDICATION
     Route: 065
  12. SEROPLEX [Concomitant]
     Active Substance: ESCITALOPRAM OXALATE
     Indication: PRODUCT USED FOR UNKNOWN INDICATION
     Dosage: 10 MG, QD
     Route: 065
  13. METFORMINE [Concomitant]
     Active Substance: METFORMIN HYDROCHLORIDE
     Indication: PRODUCT USED FOR UNKNOWN INDICATION
     Dosage: 500 OT
     Route: 065
  14. SOLUPRED [Concomitant]
     Indication: PRODUCT USED FOR UNKNOWN INDICATION
     Route: 065

REACTIONS (13)
  - Metastases to liver [Unknown]
  - Hepatic lesion [Unknown]
  - Fatigue [Unknown]
  - Rash [Recovered/Resolved]
  - Hepatomegaly [Unknown]
  - Nausea [Unknown]
  - Hyperglycaemia [Recovered/Resolved]
  - Haemorrhage [Unknown]
  - Pyrexia [Unknown]
  - Decreased appetite [Unknown]
  - Hepatocellular injury [Recovering/Resolving]
  - Concomitant disease aggravated [Unknown]
  - Abdominal pain [Unknown]

NARRATIVE: CASE EVENT DATE: 20190901
